FAERS Safety Report 9209730 (Version 1)
Quarter: 2013Q2

REPORT INFORMATION
  Report Type: Spontaneous
  Country: US (occurrence: US)
  Receive Date: 20130404
  Receipt Date: 20130404
  Transmission Date: 20140414
  Serious: Yes (Hospitalization)
  Sender: FDA-Public Use
  Company Number: US-AMGEN-USASP2013021644

PATIENT
  Age: 77 Year
  Sex: Female

DRUGS (4)
  1. PROLIA [Suspect]
     Indication: OSTEOPOROSIS POSTMENOPAUSAL
     Dosage: UNK
     Dates: start: 201109
  2. ATENOLOL [Concomitant]
     Dosage: 50 MG, UNK
  3. NORVASC [Concomitant]
     Dosage: 5 MG, UNK
  4. HYDROXYCHLOROQUINE [Concomitant]

REACTIONS (4)
  - Dyspepsia [Unknown]
  - Blood pressure increased [Unknown]
  - Gastric disorder [Unknown]
  - Cystitis [Unknown]
